FAERS Safety Report 5396684-4 (Version None)
Quarter: 2007Q3

REPORT INFORMATION
  Report Type: 
  Country: None (occurrence: None)
  Receive Date: 20070725
  Receipt Date: 20070712
  Transmission Date: 20080115
  Serious: Yes (Life-Threatening, Hospitalization)
  Sender: FDA-Public Use
  Company Number: FR-MERCK-0707FRA00041

PATIENT
  Age: 49 Year
  Sex: Male

DRUGS (9)
  1. EMEND [Suspect]
     Indication: PROPHYLAXIS OF NAUSEA AND VOMITING
     Route: 048
     Dates: start: 20070417, end: 20070417
  2. EMEND [Suspect]
     Route: 048
     Dates: start: 20070418, end: 20070419
  3. PEGFILGRASTIM [Suspect]
     Indication: PROPHYLAXIS
     Route: 051
     Dates: start: 20070421, end: 20070421
  4. DOXORUBICIN HYDROCHLORIDE [Concomitant]
     Indication: SYNOVIAL SARCOMA METASTATIC
     Route: 051
     Dates: start: 20070417, end: 20070417
  5. ONDANSETRON HYDROCHLORIDE [Concomitant]
     Indication: PROPHYLAXIS OF NAUSEA AND VOMITING
     Route: 051
     Dates: start: 20070417
  6. METHYLPREDNISOLONE SODIUM SUCCINATE [Concomitant]
     Indication: PROPHYLAXIS OF NAUSEA AND VOMITING
     Route: 051
     Dates: start: 20070417
  7. METOCLOPRAMIDE HYDROCHLORIDE [Concomitant]
     Indication: PROPHYLAXIS OF NAUSEA AND VOMITING
     Route: 065
     Dates: start: 20070419
  8. PROPRANOLOL HYDROCHLORIDE [Concomitant]
     Route: 048
  9. IFOSFAMIDE [Concomitant]
     Indication: SYNOVIAL SARCOMA METASTATIC
     Route: 051
     Dates: start: 20070417, end: 20070419

REACTIONS (3)
  - DRUG INEFFECTIVE [None]
  - NEUTROPENIA [None]
  - THROMBOCYTOPENIA [None]
